FAERS Safety Report 16256256 (Version 1)
Quarter: 2019Q2

REPORT INFORMATION
  Report Type: Spontaneous
  Country: CN (occurrence: CN)
  Receive Date: 20190430
  Receipt Date: 20190430
  Transmission Date: 20190711
  Serious: Yes (Other)
  Sender: FDA-Public Use
  Company Number: CN-ROCHE-2307256

PATIENT
  Age: 54 Year
  Sex: Female

DRUGS (14)
  1. BEVACIZUMAB. [Suspect]
     Active Substance: BEVACIZUMAB
     Route: 040
     Dates: start: 20181018, end: 20190110
  2. CALCIUM FOLINATE [Concomitant]
     Active Substance: LEUCOVORIN CALCIUM
     Route: 042
     Dates: start: 20181018, end: 20190110
  3. FLUOROURACIL. [Concomitant]
     Active Substance: FLUOROURACIL
     Indication: COLON CANCER
     Route: 042
     Dates: start: 20180518, end: 20180605
  4. CALCIUM FOLINATE [Concomitant]
     Active Substance: LEUCOVORIN CALCIUM
     Route: 042
     Dates: start: 20180725, end: 20180829
  5. BEVACIZUMAB. [Suspect]
     Active Substance: BEVACIZUMAB
     Indication: COLON CANCER
     Route: 041
     Dates: start: 20180518, end: 20180605
  6. FLUOROURACIL. [Concomitant]
     Active Substance: FLUOROURACIL
     Route: 042
     Dates: start: 20181018, end: 20190110
  7. CALCIUM FOLINATE [Concomitant]
     Active Substance: LEUCOVORIN CALCIUM
     Route: 042
     Dates: start: 20180613, end: 20180717
  8. FLUOROURACIL. [Concomitant]
     Active Substance: FLUOROURACIL
     Route: 042
     Dates: start: 20180613, end: 20180717
  9. IRINOTECAN [Concomitant]
     Active Substance: IRINOTECAN
     Route: 041
     Dates: start: 20180613, end: 20180717
  10. IRINOTECAN [Concomitant]
     Active Substance: IRINOTECAN
     Route: 041
     Dates: start: 20181018, end: 20190110
  11. CALCIUM FOLINATE [Concomitant]
     Active Substance: LEUCOVORIN CALCIUM
     Indication: COLON CANCER
     Route: 042
     Dates: start: 20180518, end: 20180605
  12. IRINOTECAN [Concomitant]
     Active Substance: IRINOTECAN
     Indication: COLON CANCER
     Route: 041
     Dates: start: 20180518, end: 20180605
  13. FLUOROURACIL. [Concomitant]
     Active Substance: FLUOROURACIL
     Route: 042
     Dates: start: 20180725, end: 20180829
  14. BEVACIZUMAB. [Suspect]
     Active Substance: BEVACIZUMAB
     Route: 041
     Dates: start: 20180613, end: 20180717

REACTIONS (10)
  - Cyst [Unknown]
  - Spinal osteoarthritis [Unknown]
  - Metabolic disorder [Unknown]
  - Bone marrow failure [Unknown]
  - Hepatic steatosis [Unknown]
  - Pyrexia [Unknown]
  - Nasal turbinate hypertrophy [Unknown]
  - Upper respiratory tract infection [Unknown]
  - Pharyngitis [Unknown]
  - Sepsis [Unknown]

NARRATIVE: CASE EVENT DATE: 201806
